FAERS Safety Report 18766975 (Version 1)
Quarter: 2021Q1

REPORT INFORMATION
  Report Type: Spontaneous
  Country: US (occurrence: US)
  Receive Date: 20210120
  Receipt Date: 20210120
  Transmission Date: 20210419
  Serious: Yes (Hospitalization)
  Sender: FDA-Public Use
  Company Number: None

PATIENT
  Age: 67 Year
  Sex: Female
  Weight: 68 kg

DRUGS (9)
  1. DEXLANSOPRAZOLE 60MG CAPSULE [Concomitant]
  2. CASIRIVIMAB/IMDEVIMAB [Suspect]
     Active Substance: CASIRIVIMAB\IMDEVIMAB
     Indication: COVID-19
     Route: 041
     Dates: start: 20210120, end: 20210120
  3. ACETAMINOPHEN 325MG [Concomitant]
  4. VITAMIN D3 2000 UNITS [Concomitant]
  5. ASPIRIN EC 81MG [Concomitant]
  6. URIBEL 118MG [Concomitant]
  7. METOPROLOL SUCCINATE 100MG [Concomitant]
  8. ROSUVASTATIN 20MG [Concomitant]
     Active Substance: ROSUVASTATIN
  9. PREMARIN VACINAL CREAM [Concomitant]

REACTIONS (3)
  - Oxygen saturation decreased [None]
  - Hypotension [None]
  - Haematemesis [None]

NARRATIVE: CASE EVENT DATE: 20210120
